FAERS Safety Report 7852227-4 (Version None)
Quarter: 2011Q4

REPORT INFORMATION
  Report Type: 
  Country: None (occurrence: None)
  Receive Date: 20111026
  Receipt Date: 20111015
  Transmission Date: 20120403
  Serious: Yes (Hospitalization)
  Sender: FDA-Public Use
  Company Number: JP-ELI_LILLY_AND_COMPANY-JP201108001335

PATIENT
  Age: 85 Year
  Sex: Female

DRUGS (3)
  1. BEPRICOR [Concomitant]
     Indication: CARDIAC DISORDER
  2. FORTEO [Suspect]
     Dosage: UNK
     Route: 058
     Dates: start: 20110705, end: 20110826
  3. SUNRYTHM [Concomitant]
     Indication: CARDIAC DISORDER
     Route: 048

REACTIONS (8)
  - LUMBAR VERTEBRAL FRACTURE [None]
  - DECREASED APPETITE [None]
  - MALAISE [None]
  - PRURITUS [None]
  - NAUSEA [None]
  - PYREXIA [None]
  - DIZZINESS [None]
  - OROPHARYNGEAL PAIN [None]
